FAERS Safety Report 13821696 (Version 1)
Quarter: 2017Q3

REPORT INFORMATION
  Report Type: Spontaneous
  Country: US (occurrence: US)
  Receive Date: 20170801
  Receipt Date: 20170801
  Transmission Date: 20171127
  Serious: Yes (Hospitalization, Other)
  Sender: FDA-Public Use
  Company Number: US-ASTRAZENECA-2017SE75475

PATIENT
  Age: 61 Year
  Sex: Female
  Weight: 95.3 kg

DRUGS (25)
  1. ABREVA [Concomitant]
     Active Substance: DOCOSANOL
     Dates: start: 201611
  2. ROBINUL [Concomitant]
     Active Substance: GLYCOPYRROLATE
  3. IBRANCE [Suspect]
     Active Substance: PALBOCICLIB
     Indication: BREAST CANCER METASTATIC
     Route: 048
     Dates: start: 201612
  4. NOVOLOG [Concomitant]
     Active Substance: INSULIN ASPART
     Indication: DIABETES MELLITUS
     Dosage: 10 UNITS IN MORNING 60 UNITS WITH DINNER
     Dates: start: 201610
  5. PLAVIX [Concomitant]
     Active Substance: CLOPIDOGREL BISULFATE
     Dates: start: 201005
  6. LIPITOR [Concomitant]
     Active Substance: ATORVASTATIN CALCIUM
     Indication: BLOOD CHOLESTEROL ABNORMAL
  7. JANUVIA [Concomitant]
     Active Substance: SITAGLIPTIN PHOSPHATE
  8. ARIMIDEX [Suspect]
     Active Substance: ANASTROZOLE
     Route: 048
  9. TYLENOL [Concomitant]
     Active Substance: ACETAMINOPHEN
     Indication: PAIN
     Dosage: 500.0MG AS REQUIRED
  10. PROVENTIL HFA [Concomitant]
     Active Substance: ALBUTEROL SULFATE
     Dates: start: 2009
  11. FEMARA [Suspect]
     Active Substance: LETROZOLE
     Route: 065
  12. MAGNESIUM [Concomitant]
     Active Substance: MAGNESIUM
  13. FEMARA [Suspect]
     Active Substance: LETROZOLE
     Dosage: HIGHER DOSE
     Route: 065
     Dates: start: 201612
  14. FOLIC ACID. [Concomitant]
     Active Substance: FOLIC ACID
  15. DULCOLAX NOS [Concomitant]
     Active Substance: BISACODYL OR DOCUSATE SODIUM
  16. FASLODEX [Suspect]
     Active Substance: FULVESTRANT
     Route: 030
     Dates: start: 201612
  17. LANSOPRAZOLE. [Concomitant]
     Active Substance: LANSOPRAZOLE
     Indication: GASTROOESOPHAGEAL REFLUX DISEASE
     Dates: start: 201610
  18. PLAVIX [Concomitant]
     Active Substance: CLOPIDOGREL BISULFATE
     Dates: start: 2009
  19. VITAMIN D3 [Concomitant]
     Active Substance: CHOLECALCIFEROL
     Dosage: 20001U ONCE A DAY AND SOOOIU ONCE DAY
     Dates: start: 201612
  20. LISINOPRIL. [Suspect]
     Active Substance: LISINOPRIL
     Indication: HYPERTENSION
     Route: 048
     Dates: start: 2009
  21. GLIMEPIRIDE. [Concomitant]
     Active Substance: GLIMEPIRIDE
     Indication: DIABETES MELLITUS
  22. ASPIRIN. [Concomitant]
     Active Substance: ASPIRIN
     Indication: ANTICOAGULANT THERAPY
     Dates: start: 200911
  23. VITAMIN B12 [Concomitant]
     Active Substance: CYANOCOBALAMIN
  24. NOVOLIN [Concomitant]
     Active Substance: INSULIN HUMAN
  25. ALIGN [Concomitant]
     Active Substance: BIFIDOBACTERIUM LONGUM SUBSP. INFANTIS

REACTIONS (16)
  - Hypertension [Unknown]
  - Bone disorder [Unknown]
  - Cerebrovascular accident [Unknown]
  - Decreased appetite [Unknown]
  - Blood potassium increased [Unknown]
  - Neoplasm recurrence [Unknown]
  - Dehydration [Unknown]
  - Transient ischaemic attack [Recovered/Resolved]
  - Rash [Not Recovered/Not Resolved]
  - Subcutaneous abscess [Unknown]
  - Constipation [Unknown]
  - Blood glucose increased [Not Recovered/Not Resolved]
  - Tooth infection [Unknown]
  - Oral herpes [Unknown]
  - Sinusitis [Unknown]
  - Renal impairment [Unknown]

NARRATIVE: CASE EVENT DATE: 2009
